FAERS Safety Report 4453153-3 (Version None)
Quarter: 2004Q3

REPORT INFORMATION
  Report Type: 
  Country: None (occurrence: None)
  Receive Date: 20040817
  Receipt Date: 19990712
  Transmission Date: 20050211
  Serious: Yes (Hospitalization)
  Sender: FDA-Public Use
  Company Number: SYNAGIS-00239(1)

PATIENT
  Age: 15 Month
  Sex: Male
  Weight: 3.8556 kg

DRUGS (5)
  1. SYNAGIS [Suspect]
     Indication: ANTIVIRAL PROPHYLAXIS
     Dosage: 1 IN 30 D, INTRAMUSCULAR
     Route: 030
     Dates: start: 19981208, end: 19981208
  2. SYNAGIS [Suspect]
     Indication: ANTIVIRAL PROPHYLAXIS
     Dosage: 1 IN 30 D, INTRAMUSCULAR
     Route: 030
     Dates: start: 19990105, end: 19990105
  3. ZANTAC [Concomitant]
  4. MYLANTA [Concomitant]
  5. ALBUTEROL [Concomitant]

REACTIONS (3)
  - NASAL CONGESTION [None]
  - RESPIRATORY SYNCYTIAL VIRUS INFECTION [None]
  - WHEEZING [None]
